FAERS Safety Report 6747088-0 (Version None)
Quarter: 2010Q2

REPORT INFORMATION
  Report Type: 
  Country: None (occurrence: None)
  Receive Date: 20100528
  Receipt Date: 20100521
  Transmission Date: 20101027
  Serious: Yes (Death, Other)
  Sender: FDA-Public Use
  Company Number: US-PURDUE-USA-2010-0044077

PATIENT
  Age: 15 Year
  Sex: Female

DRUGS (3)
  1. OXYCODONE HCL [Suspect]
     Indication: DRUG ABUSE
  2. VALIUM [Suspect]
     Indication: DRUG ABUSE
  3. METHAMPHETAMINE HYDROCHLORIDE [Suspect]
     Indication: DRUG ABUSE

REACTIONS (8)
  - BLOOD PRESSURE FLUCTUATION [None]
  - BRAIN INJURY [None]
  - DRUG ABUSE [None]
  - DYSPNOEA [None]
  - LOSS OF CONSCIOUSNESS [None]
  - MUSCLE TIGHTNESS [None]
  - OVERDOSE [None]
  - UNRESPONSIVE TO STIMULI [None]
